FAERS Safety Report 12330910 (Version 3)
Quarter: 2016Q2

REPORT INFORMATION
  Report Type: Spontaneous
  Country: US (occurrence: US)
  Receive Date: 20160504
  Receipt Date: 20160623
  Transmission Date: 20160815
  Serious: Yes (Other)
  Sender: FDA-Public Use
  Company Number: US-009507513-1604USA013761

PATIENT
  Age: 77 Year
  Sex: Male

DRUGS (2)
  1. ALLEGRA [Concomitant]
     Active Substance: FEXOFENADINE HYDROCHLORIDE
     Indication: HYPERSENSITIVITY
  2. KEYTRUDA [Suspect]
     Active Substance: PEMBROLIZUMAB
     Indication: MALIGNANT MELANOMA
     Dosage: NEXT INFUSION SCHEDULED FOR 29-APR-2016 WHICH IS 3 WEEKS AFTER FIRST INFUSION
     Dates: start: 20160406, end: 20160406

REACTIONS (35)
  - Pulmonary oedema [Recovered/Resolved]
  - Influenza [Unknown]
  - Chronic obstructive pulmonary disease [Unknown]
  - Mental impairment [Recovered/Resolved]
  - Influenza like illness [Recovering/Resolving]
  - Fatigue [Not Recovered/Not Resolved]
  - Urinary tract infection [Unknown]
  - Body temperature increased [Unknown]
  - Cough [Recovering/Resolving]
  - Breath sounds abnormal [Not Recovered/Not Resolved]
  - Gait disturbance [Not Recovered/Not Resolved]
  - Pain in extremity [Unknown]
  - Heart rate irregular [Unknown]
  - Rhinorrhoea [Recovering/Resolving]
  - Dyskinesia [Recovering/Resolving]
  - Decreased appetite [Recovering/Resolving]
  - Nausea [Recovered/Resolved]
  - Asthenia [Unknown]
  - Malaise [Recovering/Resolving]
  - Dehydration [Unknown]
  - Personality change [Not Recovered/Not Resolved]
  - Hypotension [Unknown]
  - Irritability [Unknown]
  - Arthralgia [Recovering/Resolving]
  - Paranasal sinus hypersecretion [Unknown]
  - Urine analysis abnormal [Unknown]
  - Amnesia [Not Recovered/Not Resolved]
  - Eye swelling [Unknown]
  - Malignant neoplasm progression [Unknown]
  - Peripheral coldness [Unknown]
  - Sleep disorder [Recovering/Resolving]
  - Eye operation [Unknown]
  - Coating in mouth [Unknown]
  - Skeletal injury [Unknown]
  - Swelling face [Unknown]

NARRATIVE: CASE EVENT DATE: 2016
